FAERS Safety Report 8988146 (Version 6)
Quarter: 2016Q2

REPORT INFORMATION
  Report Type: Spontaneous
  Country: US (occurrence: US)
  Receive Date: 20121227
  Receipt Date: 20160408
  Transmission Date: 20160815
  Serious: Yes (Other)
  Sender: FDA-Public Use
  Company Number: US-009507513-1212USA009109

PATIENT
  Sex: Male
  Weight: 82.86 kg

DRUGS (4)
  1. PROPECIA [Suspect]
     Active Substance: FINASTERIDE
     Indication: ANDROGENETIC ALOPECIA
     Dosage: 1 MG, UNK
     Route: 048
     Dates: start: 20001123, end: 2003
  2. PROPECIA [Suspect]
     Active Substance: FINASTERIDE
     Dosage: 1 MG, UNK
     Route: 048
     Dates: start: 200509
  3. PROPECIA [Suspect]
     Active Substance: FINASTERIDE
     Dosage: 1 UNK, UNK
     Route: 048
     Dates: start: 2009, end: 2011
  4. ZANAFLEX [Concomitant]
     Active Substance: TIZANIDINE HYDROCHLORIDE
     Dosage: UNK
     Dates: start: 1986

REACTIONS (15)
  - Arthritis [Unknown]
  - Erectile dysfunction [Unknown]
  - Bone graft [Unknown]
  - Anxiety [Not Recovered/Not Resolved]
  - Erectile dysfunction [Not Recovered/Not Resolved]
  - Constipation [Unknown]
  - Skin irritation [Unknown]
  - Pollakiuria [Unknown]
  - Benign prostatic hyperplasia [Unknown]
  - Erectile dysfunction [Not Recovered/Not Resolved]
  - Femur fracture [Unknown]
  - Cognitive disorder [Not Recovered/Not Resolved]
  - Glucose tolerance impaired [Unknown]
  - Jaw fracture [Unknown]
  - Urinary retention [Unknown]

NARRATIVE: CASE EVENT DATE: 2000
